FAERS Safety Report 7927219 (Version 3)
Quarter: 2013Q1

REPORT INFORMATION
  Report Type: Spontaneous
  Country: US (occurrence: US)
  Receive Date: 20110502
  Receipt Date: 20130221
  Transmission Date: 20140127
  Serious: No
  Sender: FDA-Public Use
  Company Number: US-ASTRAZENECA-2010SE56638

PATIENT
  Age: 60 Year
  Sex: Male

DRUGS (1)
  1. NEXIUM [Suspect]
     Route: 048

REACTIONS (8)
  - Dysphagia [Unknown]
  - Hypertension [Unknown]
  - Blood cholesterol increased [Unknown]
  - Weight decreased [Unknown]
  - Anxiety [Unknown]
  - Regurgitation [Unknown]
  - Insomnia [Unknown]
  - Drug dose omission [Unknown]
